FAERS Safety Report 4683600-3 (Version None)
Quarter: 2005Q2

REPORT INFORMATION
  Report Type: 
  Country: None (occurrence: None)
  Receive Date: 20050602
  Receipt Date: 20050221
  Transmission Date: 20051028
  Serious: Yes (Hospitalization)
  Sender: FDA-Public Use
  Company Number: USA041286553

PATIENT
  Age: 62 Year
  Sex: Female
  Weight: 57 kg

DRUGS (25)
  1. FORTEO [Suspect]
     Indication: OSTEOPOROSIS
     Dosage: 20 UG/L DAY
     Dates: start: 20041101, end: 20040101
  2. CYMBALTA [Suspect]
     Indication: NEUROPATHY
     Dosage: 40 MG DAY
     Dates: start: 20041101, end: 20040101
  3. BACLOFEN [Concomitant]
  4. CLONAZEPAM [Concomitant]
  5. AMBIEN (ZOLIPDEM TARTRATE) [Concomitant]
  6. CALCIUM GLUCONATE [Concomitant]
  7. NORVASC [Concomitant]
  8. NEXIUM [Concomitant]
  9. CALCIUM WITH VITAMIN D [Concomitant]
  10. GLUCOSAMINE [Concomitant]
  11. MAGNESIUM (MAGNESIUM ASPARTATE) [Concomitant]
  12. VITAMIN E [Concomitant]
  13. KLOR-CON [Concomitant]
  14. FLAX SEED OIL [Concomitant]
  15. ACETYLSALICYLIC ACID SRT [Concomitant]
  16. PULMICORT [Concomitant]
  17. RHINOCORT [Concomitant]
  18. HYDROCODONE BITARTRATE [Concomitant]
  19. LIPITOR [Concomitant]
  20. QUININE SULFATE [Concomitant]
  21. BEXTRA [Concomitant]
  22. ALEVE [Concomitant]
  23. TYLENOL [Concomitant]
  24. MIACALCIN [Concomitant]
  25. DIOVAN [Concomitant]

REACTIONS (16)
  - ARTHRALGIA [None]
  - BACK PAIN [None]
  - CONTUSION [None]
  - DIZZINESS [None]
  - FATIGUE [None]
  - FEELING ABNORMAL [None]
  - GASTRIC DISORDER [None]
  - INTESTINAL FUNCTIONAL DISORDER [None]
  - MALAISE [None]
  - MUSCLE SPASMS [None]
  - MUSCLE TWITCHING [None]
  - NAUSEA [None]
  - OSTEOARTHRITIS [None]
  - PAIN [None]
  - PAIN IN EXTREMITY [None]
  - WEIGHT DECREASED [None]
